FAERS Safety Report 8904693 (Version 1)
Quarter: 2012Q4

REPORT INFORMATION
  Report Type: 
  Country: US (occurrence: US)
  Receive Date: 20121113
  Receipt Date: 20121113
  Transmission Date: 20130627
  Serious: No
  Sender: FDA-Public Use
  Company Number: US-GLAXOSMITHKLINE-A0970867A

PATIENT
  Age: 50 Year
  Sex: Female

DRUGS (17)
  1. COREG [Suspect]
     Dosage: 12.5MG Twice per day
     Route: 048
  2. ADVAIR [Suspect]
     Indication: ASTHMA
     Route: 055
  3. TRAZODONE [Suspect]
     Route: 065
  4. ASPIRIN [Suspect]
     Dosage: 81MG per day
     Route: 065
  5. DEPAKOTE [Suspect]
     Route: 065
  6. NIASPAN [Suspect]
     Indication: BLOOD CHOLESTEROL INCREASED
     Dosage: 500MGD per day
  7. GEODON [Suspect]
     Route: 065
  8. INDERAL [Suspect]
     Route: 065
  9. LISINOPRIL [Suspect]
     Indication: HYPERTENSION
     Dosage: 40MGD per day
  10. SPIRIVA [Suspect]
     Indication: ASTHMA
     Route: 055
  11. COMBIVENT [Suspect]
     Indication: ASTHMA
     Route: 055
  12. SYMBICORT [Suspect]
     Indication: ASTHMA
     Route: 065
  13. NORVASC [Suspect]
     Indication: HYPERTENSION
     Dosage: 10MG Unknown
  14. SEROQUEL [Suspect]
     Indication: POSTPARTUM DEPRESSION
     Dosage: 100MGD per day
     Dates: start: 2006
  15. ESTRADIOL [Suspect]
     Dosage: .5MG Unknown
  16. MEDROXYPROGESTERONE [Suspect]
     Dosage: 2.5MG Unknown
     Route: 065
  17. CHANTIX [Suspect]
     Indication: EX-TOBACCO USER
     Dates: start: 201201

REACTIONS (12)
  - Gastric disorder [Unknown]
  - Irritability [Unknown]
  - Agitation [Unknown]
  - Migraine [Unknown]
  - Nausea [Unknown]
  - Memory impairment [Unknown]
  - Stress [Unknown]
  - Tremor [Unknown]
  - Disorientation [Unknown]
  - Somnolence [Unknown]
  - Dry mouth [Unknown]
  - Dizziness [Unknown]
